FAERS Safety Report 4362999-1 (Version None)
Quarter: 2004Q2

REPORT INFORMATION
  Report Type: 
  Country: None (occurrence: None)
  Receive Date: 20040518
  Receipt Date: 20040504
  Transmission Date: 20050107
  Serious: Yes (Life-Threatening)
  Sender: FDA-Public Use
  Company Number: 04P-151-0259623-00

PATIENT
  Age: 52 Year
  Sex: Female

DRUGS (2)
  1. VALPROIC ACID (DEPAKENE) (VALPROIC ACID) (VALPROIC ACID) [Suspect]
     Indication: OVERDOSE
     Dosage: PER ORAL
     Route: 048
     Dates: start: 20040405, end: 20040406
  2. ACETAMINOPHEN [Suspect]
     Indication: OVERDOSE
     Dosage: PER ORAL
     Route: 048
     Dates: start: 20040405, end: 20040406

REACTIONS (9)
  - COMA [None]
  - DISSEMINATED INTRAVASCULAR COAGULATION [None]
  - HAEMODYNAMIC INSTABILITY [None]
  - HEPATIC FAILURE [None]
  - LOSS OF CONSCIOUSNESS [None]
  - OVERDOSE [None]
  - RENAL FAILURE ACUTE [None]
  - SHOCK [None]
  - THROMBOCYTOPENIA [None]
